FAERS Safety Report 9192834 (Version 1)
Quarter: 2013Q1

REPORT INFORMATION
  Report Type: Spontaneous
  Country: US (occurrence: None)
  Receive Date: 20130325
  Receipt Date: 20130325
  Transmission Date: 20140127
  Serious: Yes (Disabling)
  Sender: FDA-Public Use
  Company Number: 2013-05186

PATIENT
  Age: 43 Year
  Sex: Female

DRUGS (1)
  1. BUPRENORPHINE-NALOXONE (AELLC) [Suspect]
     Indication: BACK PAIN
     Route: 048
     Dates: start: 20130316, end: 20130317

REACTIONS (4)
  - Vertigo [None]
  - Bedridden [None]
  - Nausea [None]
  - Vomiting [None]
